FAERS Safety Report 10195370 (Version 1)
Quarter: 2014Q2

REPORT INFORMATION
  Report Type: Spontaneous
  Country: AL (occurrence: AL)
  Receive Date: 20140526
  Receipt Date: 20140526
  Transmission Date: 20141212
  Serious: Yes (Hospitalization)
  Sender: FDA-Public Use
  Company Number: PHHY2014AL062595

PATIENT
  Age: 20 Year
  Sex: Male
  Weight: 48.5 kg

DRUGS (7)
  1. ZOLEDRONATE [Suspect]
     Indication: NEUROBLASTOMA
     Dosage: 4 MG, UNK
     Route: 042
     Dates: start: 20120604
  2. INTERLEUKIN-2 [Suspect]
     Indication: NEUROBLASTOMA
     Dosage: 4.53 MIL UNITS, UNK
     Route: 058
     Dates: start: 20120604
  3. INTERLEUKIN-2 [Suspect]
     Dosage: 4.53 MIL UNITS, UNK
     Route: 058
     Dates: start: 20120605
  4. ACETAMINOPHEN [Concomitant]
     Dosage: UNK UKN, UNK
     Dates: start: 20120604
  5. DIPHENHYDRAMINE [Concomitant]
     Dosage: UNK UKN, UNK
     Dates: start: 20120604
  6. CITRACAL-D [Concomitant]
     Dosage: UNK UKN, UNK
     Dates: start: 20120604
  7. OXYCONTIN [Concomitant]
     Dosage: UNK UKN, UNK
     Dates: start: 20120515

REACTIONS (4)
  - Pyrexia [Unknown]
  - Tachycardia [Unknown]
  - Hypotension [Unknown]
  - Pain in extremity [Unknown]
